FAERS Safety Report 5474104-9 (Version None)
Quarter: 2007Q4

REPORT INFORMATION
  Report Type: 
  Country: None (occurrence: None)
  Receive Date: 20071002
  Receipt Date: 20071001
  Transmission Date: 20080405
  Serious: Yes (Hospitalization, Other)
  Sender: FDA-Public Use
  Company Number: US-RB-007798-07

PATIENT
  Sex: Male
  Weight: 1.3 kg

DRUGS (2)
  1. SUBUTEX [Suspect]
     Indication: DRUG USE FOR UNKNOWN INDICATION
     Route: 064
     Dates: end: 20070801
  2. METHADONE HCL [Concomitant]
     Indication: DRUG WITHDRAWAL SYNDROME NEONATAL
     Dates: start: 20070823

REACTIONS (6)
  - DIARRHOEA [None]
  - DRUG WITHDRAWAL SYNDROME NEONATAL [None]
  - INSOMNIA [None]
  - PREMATURE BABY [None]
  - SMALL FOR DATES BABY [None]
  - TREMOR [None]
